FAERS Safety Report 21998437 (Version 1)
Quarter: 2023Q1

REPORT INFORMATION
  Report Type: Other
  Country: IN (occurrence: None)
  Receive Date: 20230216
  Receipt Date: 20230216
  Transmission Date: 20230418
  Serious: Yes (Other)
  Sender: FDA-Public Use
  Company Number: IN-ROCHE-3228526

PATIENT
  Age: 56 Year
  Sex: Female

DRUGS (1)
  1. PERJETA [Suspect]
     Active Substance: PERTUZUMAB
     Indication: Breast cancer metastatic
     Route: 042
     Dates: start: 20221014

REACTIONS (4)
  - Asthenia [Unknown]
  - Dyspnoea [Unknown]
  - Pleural effusion [Unknown]
  - Pericardial effusion [Unknown]
